FAERS Safety Report 11709524 (Version 2)
Quarter: 2015Q4

REPORT INFORMATION
  Report Type: Spontaneous
  Country: US (occurrence: US)
  Receive Date: 20151104
  Receipt Date: 20151110
  Transmission Date: 20160304
  Serious: No
  Sender: FDA-Public Use
  Company Number: US-ELI_LILLY_AND_COMPANY-US201108006563

PATIENT
  Sex: Female

DRUGS (3)
  1. METHOTREXATE [Concomitant]
     Active Substance: METHOTREXATE
  2. FORTEO [Suspect]
     Active Substance: TERIPARATIDE
     Dosage: 20 UG, QD
  3. FORTEO [Suspect]
     Active Substance: TERIPARATIDE
     Indication: OSTEOPOROSIS
     Dosage: 20 UG, QD
     Route: 065
     Dates: start: 20110810

REACTIONS (34)
  - Disturbance in attention [Unknown]
  - Flushing [Unknown]
  - Feeling hot [Unknown]
  - Eye inflammation [Not Recovered/Not Resolved]
  - Cold sweat [Unknown]
  - Pollakiuria [Unknown]
  - Flatulence [Unknown]
  - Malaise [Unknown]
  - Eating disorder [Unknown]
  - Insomnia [Unknown]
  - Somnolence [Not Recovered/Not Resolved]
  - Confusional state [Unknown]
  - Upper limb fracture [Unknown]
  - Eye disorder [Not Recovered/Not Resolved]
  - Injection site pain [Unknown]
  - Bowel movement irregularity [Unknown]
  - Ocular hyperaemia [Not Recovered/Not Resolved]
  - Blood glucose increased [Unknown]
  - Hypotension [Unknown]
  - Fatigue [Unknown]
  - Hot flush [Unknown]
  - Feeling abnormal [Unknown]
  - Depressed mood [Unknown]
  - Pain [Unknown]
  - Asthenia [Not Recovered/Not Resolved]
  - Sensitisation [Unknown]
  - Middle insomnia [Unknown]
  - Muscle spasms [Unknown]
  - Rheumatoid arthritis [Unknown]
  - Abnormal dreams [Unknown]
  - Peripheral swelling [Unknown]
  - Burning sensation [Unknown]
  - General physical condition abnormal [Unknown]
  - Nausea [Unknown]
